FAERS Safety Report 9918597 (Version 1)
Quarter: 2014Q1

REPORT INFORMATION
  Report Type: Spontaneous
  Country: US (occurrence: US)
  Receive Date: 20140224
  Receipt Date: 20140224
  Transmission Date: 20141002
  Serious: No
  Sender: FDA-Public Use
  Company Number: US-BIOGENIDEC-2014BI015529

PATIENT
  Age: 55 Year
  Sex: Male

DRUGS (6)
  1. TECFIDERA [Suspect]
     Indication: MULTIPLE SCLEROSIS
     Route: 048
  2. LISINOPRIL [Concomitant]
  3. METOPROLOL SUCCINATE ER [Concomitant]
  4. NITROGLYCERIN [Concomitant]
  5. OXYCODONE HCL [Concomitant]
  6. SIMVASTATIN [Concomitant]

REACTIONS (2)
  - Rhinorrhoea [Unknown]
  - Dyspepsia [Unknown]
